FAERS Safety Report 5568652-0 (Version None)
Quarter: 2007Q4

REPORT INFORMATION
  Report Type: 
  Country: None (occurrence: None)
  Receive Date: 20071220
  Receipt Date: 20071207
  Transmission Date: 20080405
  Serious: Yes (Other)
  Sender: FDA-Public Use
  Company Number: JP-ASTRAZENECA-2007AP08019

PATIENT
  Age: 40 Year
  Sex: Female

DRUGS (2)
  1. SEROQUEL [Suspect]
     Route: 048
  2. RISPERDAL [Concomitant]
     Route: 048

REACTIONS (3)
  - LUNG DISORDER [None]
  - PNEUMONIA [None]
  - SUICIDE ATTEMPT [None]
